FAERS Safety Report 23078466 (Version 1)
Quarter: 2023Q4

REPORT INFORMATION
  Report Type: Spontaneous
  Country: US (occurrence: US)
  Receive Date: 20231018
  Receipt Date: 20231018
  Transmission Date: 20240110
  Serious: Yes (Other)
  Sender: FDA-Public Use
  Company Number: US-SA-SAC20231017000863

PATIENT
  Sex: Female
  Weight: 70 kg

DRUGS (3)
  1. DUPIXENT [Suspect]
     Active Substance: DUPILUMAB
     Indication: Dermatitis atopic
     Dosage: 300 MG, QOW
     Route: 058
  2. DUPIXENT [Suspect]
     Active Substance: DUPILUMAB
     Dosage: 300 MG, QOW
     Route: 058
  3. RINVOQ [Concomitant]
     Active Substance: UPADACITINIB

REACTIONS (7)
  - Autoimmune disorder [Recovered/Resolved]
  - Inflammatory marker increased [Recovered/Resolved]
  - Visual impairment [Recovered/Resolved]
  - Ocular hyperaemia [Recovered/Resolved]
  - Eye inflammation [Recovered/Resolved]
  - Maternal exposure during pregnancy [Unknown]
  - Therapeutic product effect decreased [Unknown]
